FAERS Safety Report 21208647 (Version 1)
Quarter: 2022Q3

REPORT INFORMATION
  Report Type: Spontaneous
  Country: US (occurrence: None)
  Receive Date: 20220811
  Receipt Date: 20220811
  Transmission Date: 20221026
  Serious: No
  Sender: FDA-Public Use
  Company Number: None

PATIENT
  Age: 75 Year
  Sex: Male
  Weight: 111.58 kg

DRUGS (9)
  1. XTANDI [Suspect]
     Active Substance: ENZALUTAMIDE
     Indication: Prostate cancer
     Dosage: 160MG ONCE DAILY BY MOUTH?
     Route: 048
  2. ASPIRIN [Concomitant]
     Active Substance: ASPIRIN
  3. TEA [Concomitant]
     Active Substance: TEA LEAF
  4. METOPROLOL TARTRATE [Concomitant]
     Active Substance: METOPROLOL TARTRATE
  5. DIETARY SUPPLEMENT [Concomitant]
     Active Substance: DIETARY SUPPLEMENT
  6. TAMSULOSIN [Concomitant]
     Active Substance: TAMSULOSIN
  7. Multivitamin for Men [Concomitant]
  8. Vitamin D3 Tart cherry ultra [Concomitant]
  9. MELATONIN [Concomitant]
     Active Substance: MELATONIN

REACTIONS (1)
  - Fatigue [None]

NARRATIVE: CASE EVENT DATE: 20220101
